FAERS Safety Report 9153593 (Version 2)
Quarter: 2013Q1

REPORT INFORMATION
  Report Type: Spontaneous
  Country: IT (occurrence: IT)
  Receive Date: 20130311
  Receipt Date: 20130326
  Transmission Date: 20140127
  Serious: Yes (Hospitalization)
  Sender: FDA-Public Use
  Company Number: PHHY2013IT022594

PATIENT
  Age: 57 Year
  Sex: Male

DRUGS (16)
  1. ZOMETA [Suspect]
     Indication: RENAL CANCER
     Dosage: 1 DF, MONTHLY
     Route: 042
     Dates: start: 20120201, end: 20130201
  2. SUTENT [Suspect]
     Indication: RENAL CANCER
     Dosage: 37.5 MG, DAILY
     Route: 048
     Dates: start: 20120201, end: 20130201
  3. TAREG [Concomitant]
     Dosage: UNK UKN, UNK
  4. DIUREMID//TORASEMIDE [Concomitant]
     Dosage: UNK UKN, UNK
  5. LIBRADIN [Concomitant]
     Dosage: UNK UKN, UNK
  6. SINTROM [Concomitant]
     Dosage: 4 MG
  7. EPREX [Concomitant]
     Dosage: 1 DF, 2 TIMES WEEKLY (ON TUESDAY AND ON FRIDAY)
  8. GLURENOR [Concomitant]
     Dosage: 30 MG, TID
  9. LASIX [Concomitant]
     Dosage: 25 MG, 2 TABLETS AT 04.00 P.M.
  10. LASIX [Concomitant]
     Dosage: 500 MG, ? TABLET HOUR 08 :00 A.M.
  11. ALLOPURINOL TEVA [Concomitant]
     Dosage: 300 MG, ? TABLET DAILY (HOUR 08:00 P.M.)
  12. LUVION [Concomitant]
     Dosage: 50 MG, ? TABLET DAILY (HOUR 04:00 P.M.)
  13. LOSARTAN [Concomitant]
     Dosage: 100 MG, QD
  14. PANTOPRAZOLE [Concomitant]
     Dosage: 20 MG, 2 TABLETS DAILY (HOUR 07:00 A.M.)
  15. EUTIROX [Concomitant]
     Dosage: 50 MG, QD
  16. CARDICOR [Concomitant]
     Dosage: 2.5 MG, ? TABLET X 2 DAILY (HOUR 08.00 A.M. AND 08:00 P.M.)

REACTIONS (2)
  - Cardiac failure acute [Recovered/Resolved with Sequelae]
  - Renal failure acute [Recovered/Resolved with Sequelae]
